FAERS Safety Report 4817951-6 (Version None)
Quarter: 2005Q4

REPORT INFORMATION
  Report Type: 
  Country: None (occurrence: None)
  Receive Date: 20051102
  Receipt Date: 20051021
  Transmission Date: 20060501
  Serious: Yes (Hospitalization)
  Sender: FDA-Public Use
  Company Number: US-JNJFOC-20030904433

PATIENT
  Sex: Female

DRUGS (7)
  1. RISPERDAL [Suspect]
     Route: 048
  2. RISPERDAL [Suspect]
     Indication: BIPOLAR DISORDER
     Route: 048
  3. ALBUTEROL [Concomitant]
     Dosage: AS NEEDED
     Route: 055
  4. DOXEPIN HCL [Concomitant]
     Dosage: 1 IN THE MORNING AND 2 AT NIGHT
     Route: 065
  5. EFFEXOR XR [Concomitant]
     Route: 065
  6. DARVOCET-N 100 [Concomitant]
     Route: 065
  7. DARVOCET-N 100 [Concomitant]
     Dosage: AS NEEDED
     Route: 065

REACTIONS (4)
  - ABDOMINAL HERNIA [None]
  - ASTHMA [None]
  - PAIN IN EXTREMITY [None]
  - RHEUMATOID ARTHRITIS [None]
